FAERS Safety Report 21699152 (Version 1)
Quarter: 2022Q4

REPORT INFORMATION
  Report Type: Report from Study
  Country: JP (occurrence: JP)
  Receive Date: 20221208
  Receipt Date: 20221208
  Transmission Date: 20230112
  Serious: Yes (Life-Threatening, Other)
  Sender: FDA-Public Use
  Company Number: JP-Accord-289348

PATIENT
  Age: 77 Year
  Sex: Male

DRUGS (3)
  1. CISPLATIN [Suspect]
     Active Substance: CISPLATIN
     Indication: Lung squamous cell carcinoma stage IV
     Dosage: RECEIVED 4 CYCLES
  2. GEMCITABINE [Suspect]
     Active Substance: GEMCITABINE
     Indication: Lung squamous cell carcinoma stage IV
     Dosage: RECEIVED 4 CYCLES
  3. NECITUMUMAB [Suspect]
     Active Substance: NECITUMUMAB
     Indication: Lung squamous cell carcinoma stage IV
     Dosage: RECEIVED 4 CYCLES

REACTIONS (7)
  - Neutropenia [Unknown]
  - Thrombocytopenia [Unknown]
  - Anaemia [Unknown]
  - Hypomagnesaemia [Unknown]
  - Skin reaction [Unknown]
  - Fatigue [Unknown]
  - Decreased appetite [Unknown]
